FAERS Safety Report 8574124-1 (Version None)
Quarter: 2012Q3

REPORT INFORMATION
  Report Type: 
  Country: None (occurrence: None)
  Receive Date: 20120806
  Receipt Date: 20120801
  Transmission Date: 20120928
  Serious: Yes (Hospitalization)
  Sender: FDA-Public Use
  Company Number: PHHO2012US011351

PATIENT
  Sex: Male

DRUGS (2)
  1. BEZ235 [Suspect]
     Indication: GLIOBLASTOMA MULTIFORME
     Dosage: 400 MG, UNK
     Route: 048
     Dates: start: 20120725
  2. AFINITOR [Suspect]
     Indication: GLIOBLASTOMA MULTIFORME
     Dosage: 2.5 MG, UNK
     Route: 048
     Dates: start: 20120725

REACTIONS (2)
  - HYPOTENSION [None]
  - DIARRHOEA [None]
